FAERS Safety Report 22178075 (Version 1)
Quarter: 2023Q2

REPORT INFORMATION
  Report Type: Spontaneous
  Country: US (occurrence: US)
  Receive Date: 20230405
  Receipt Date: 20230405
  Transmission Date: 20230721
  Serious: No
  Sender: FDA-Public Use
  Company Number: USA--2022-US-000322

PATIENT
  Age: 79 Year
  Sex: Female

DRUGS (4)
  1. BRIMONIDINE TARTRATE [Suspect]
     Active Substance: BRIMONIDINE TARTRATE
  2. Prolensa 0.07% ophthalmic solution [Concomitant]
  3. Levoxyl 9,75 mcg [Concomitant]
     Route: 048
  4. Rocaltrol 0.25 mcg [Concomitant]
     Route: 048

REACTIONS (3)
  - Ocular hyperaemia [Recovered/Resolved]
  - Multiple allergies [Recovered/Resolved]
  - Eye pain [Recovered/Resolved]

NARRATIVE: CASE EVENT DATE: 20220308
